FAERS Safety Report 22021033 (Version 1)
Quarter: 2023Q1

REPORT INFORMATION
  Report Type: Report from Study
  Country: IT (occurrence: IT)
  Receive Date: 20230222
  Receipt Date: 20230222
  Transmission Date: 20230417
  Serious: Yes (Hospitalization)
  Sender: FDA-Public Use
  Company Number: None

PATIENT
  Age: 91 Year
  Sex: Male

DRUGS (9)
  1. AMIODARONE [Interacting]
     Active Substance: AMIODARONE
     Indication: Hypertension
     Dosage: 1 DOSAGE FORM, DOSAGE: 1UNIT OF MEASUREMENT
     Route: 048
  2. RIVAROXABAN [Interacting]
     Active Substance: RIVAROXABAN
     Indication: Thrombosis prophylaxis
     Dosage: 1 DOSAGE FORM, QD, DOSAGE: 1UNIT OF MEASUREMENT
     Route: 048
  3. ATROPINA SOLFATO [Concomitant]
     Indication: Glaucoma
     Dosage: 1 DOSAGE FORM, DOSAGE: 1UNIT OF MEASUREMENT
  4. RIFAXIMIN [Concomitant]
     Active Substance: RIFAXIMIN
     Dosage: 200 MILLIGRAM, 200UNIT OF MEASUREMENT: MILLIGRAMS
     Route: 065
  5. LANTUS [Concomitant]
     Active Substance: INSULIN GLARGINE
     Indication: Type 2 diabetes mellitus
     Dosage: 1 DOSAGE FORM, QD, 1UNIT OF MEASUREMENT
     Route: 058
  6. AZARGA [Concomitant]
     Active Substance: BRINZOLAMIDE\TIMOLOL MALEATE
     Indication: Glaucoma
     Dosage: 1 DOSAGE FORM, DOSAGE: 1UNIT OF MEASUREMEN
  7. ATORVASTATIN [Concomitant]
     Active Substance: ATORVASTATIN
     Indication: Hypercholesterolaemia
     Dosage: 10 MILLIGRAM, 10UNIT OF MEASUREMENT: MILLIGRAMS
     Route: 048
  8. LANSOPRAZOLE [Concomitant]
     Active Substance: LANSOPRAZOLE
     Indication: Dyspepsia
     Dosage: 15 MILLIGRAM, DOSAGE: 15UNIT OF MEASUREMENT
     Route: 048
  9. FUROSEMIDE [Concomitant]
     Active Substance: FUROSEMIDE
     Indication: Hypertension
     Dosage: 25 MILLIGRAM, DOSAGE: 25UNIT OF MEASUREMENT
     Route: 048

REACTIONS (3)
  - Rectal haemorrhage [Recovering/Resolving]
  - Anaemia [Recovering/Resolving]
  - Drug interaction [Unknown]

NARRATIVE: CASE EVENT DATE: 20220711
